FAERS Safety Report 17597444 (Version 3)
Quarter: 2020Q2

REPORT INFORMATION
  Report Type: Spontaneous
  Country: JP (occurrence: JP)
  Receive Date: 20200330
  Receipt Date: 20200623
  Transmission Date: 20200713
  Serious: Yes (Death)
  Sender: FDA-Public Use
  Company Number: JP-ROCHE-2573169

PATIENT
  Age: 82 Year
  Sex: Female
  Weight: 47 kg

DRUGS (4)
  1. CAPECITABINE. [Suspect]
     Active Substance: CAPECITABINE
     Indication: COLON CANCER
     Route: 048
     Dates: start: 20200304, end: 20200317
  2. TAKECAB [Concomitant]
     Active Substance: VONOPRAZAN FUMARATE
     Dosage: DOSAGE IS UNCERTAIN.
     Route: 048
     Dates: start: 20170419
  3. OXALIPLATIN. [Concomitant]
     Active Substance: OXALIPLATIN
     Indication: COLON CANCER
     Route: 041
     Dates: start: 20200304, end: 20200304
  4. AVASTIN [Suspect]
     Active Substance: BEVACIZUMAB
     Indication: COLON CANCER
     Route: 041
     Dates: start: 20200304, end: 20200304

REACTIONS (1)
  - Acute myocardial infarction [Fatal]

NARRATIVE: CASE EVENT DATE: 20200318
